FAERS Safety Report 24547525 (Version 1)
Quarter: 2024Q4

REPORT INFORMATION
  Report Type: Report from Study
  Country: US (occurrence: US)
  Receive Date: 20241025
  Receipt Date: 20241025
  Transmission Date: 20250114
  Serious: Yes (Hospitalization)
  Sender: DECIPHERA PHARMACEUTICALS
  Company Number: US-DECIPHERA PHARMACEUTICALS LLC-2024US000859

PATIENT
  Age: 83 Year
  Sex: Female
  Weight: 55.2 kg

DRUGS (1)
  1. QINLOCK [Suspect]
     Active Substance: RIPRETINIB
     Indication: Gastrointestinal stromal tumour
     Dosage: ONE EVERY OTHER DAY
     Route: 048
     Dates: start: 20240827, end: 2024

REACTIONS (4)
  - Fall [Unknown]
  - Hip fracture [Unknown]
  - Underdose [Unknown]
  - Inappropriate schedule of product administration [Unknown]

NARRATIVE: CASE EVENT DATE: 20240920
